FAERS Safety Report 9638696 (Version 1)
Quarter: 2013Q4

REPORT INFORMATION
  Report Type: Spontaneous
  Country: US (occurrence: US)
  Receive Date: 20131022
  Receipt Date: 20131022
  Transmission Date: 20140711
  Serious: No
  Sender: FDA-Public Use
  Company Number: US-BRISTOL-MYERS SQUIBB COMPANY-19248145

PATIENT
  Age: 67 Year
  Sex: Female
  Weight: 95.24 kg

DRUGS (3)
  1. ELIQUIS [Suspect]
     Indication: ATRIAL FIBRILLATION
     Dosage: INTER FOR 2DAYS
  2. SOTALOL [Suspect]
     Indication: ATRIAL FIBRILLATION
  3. NEXIUM [Concomitant]

REACTIONS (6)
  - Alopecia [Unknown]
  - Weight increased [Unknown]
  - Hyperhidrosis [Unknown]
  - Gastritis [Unknown]
  - Depression [Unknown]
  - Increased tendency to bruise [Unknown]
